FAERS Safety Report 10301216 (Version 1)
Quarter: 2014Q3

REPORT INFORMATION
  Report Type: Spontaneous
  Country: US (occurrence: US)
  Receive Date: 20140714
  Receipt Date: 20140714
  Transmission Date: 20150326
  Serious: No
  Sender: FDA-Public Use
  Company Number: US-BAYER-2014-104927

PATIENT
  Age: 43 Year
  Sex: Female

DRUGS (1)
  1. BETASERON [Suspect]
     Active Substance: INTERFERON BETA-1B
     Indication: MULTIPLE SCLEROSIS
     Dosage: 0.25 MG, QOD
     Route: 058
     Dates: start: 200812

REACTIONS (7)
  - Pyrexia [None]
  - Pain [None]
  - Depressed mood [None]
  - Influenza like illness [None]
  - Myalgia [None]
  - Depression [None]
  - Fatigue [None]

NARRATIVE: CASE EVENT DATE: 201407
